FAERS Safety Report 9708245 (Version 1)
Quarter: 2013Q4

REPORT INFORMATION
  Report Type: Spontaneous
  Country: US (occurrence: US)
  Receive Date: 20131125
  Receipt Date: 20131125
  Transmission Date: 20140711
  Serious: No
  Sender: FDA-Public Use
  Company Number: US-TARO-2013P1001703

PATIENT
  Age: 55 Year
  Sex: Female
  Weight: 46.27 kg

DRUGS (3)
  1. CARBAMAZEPINE TABLETS USP 200 MG [Suspect]
     Indication: TRIGEMINAL NEURALGIA
     Dates: start: 201205, end: 201209
  2. CARBAMAZEPINE TABLETS USP 200 MG [Suspect]
     Indication: TRIGEMINAL NEURALGIA
     Route: 048
     Dates: start: 201209
  3. VITAMIN D [Concomitant]

REACTIONS (2)
  - Nausea [Not Recovered/Not Resolved]
  - Constipation [Not Recovered/Not Resolved]
